FAERS Safety Report 8092438-9 (Version None)
Quarter: 2012Q1

REPORT INFORMATION
  Report Type: 
  Country: None (occurrence: None)
  Receive Date: 20120128
  Receipt Date: 20110825
  Transmission Date: 20120608
  Serious: No
  Sender: FDA-Public Use
  Company Number: US-ABBOTT-11P-163-0851795-00

PATIENT

DRUGS (2)
  1. ENTECORT [Concomitant]
     Indication: CROHN'S DISEASE
  2. HUMIRA [Suspect]
     Indication: CROHN'S DISEASE
     Dosage: NOT REPORTED
     Dates: start: 20110411

REACTIONS (8)
  - NAUSEA [None]
  - VOMITING [None]
  - INFLUENZA LIKE ILLNESS [None]
  - DIZZINESS [None]
  - ALOPECIA [None]
  - ARTHRALGIA [None]
  - STOMATITIS [None]
  - LUPUS-LIKE SYNDROME [None]
